FAERS Safety Report 15156725 (Version 1)
Quarter: 2018Q3

REPORT INFORMATION
  Report Type: Spontaneous
  Country: US (occurrence: US)
  Receive Date: 20180717
  Receipt Date: 20180717
  Transmission Date: 20181010
  Serious: No
  Sender: FDA-Public Use
  Company Number: US-BAUSCH-BL-2018-015309

PATIENT
  Age: 44 Year
  Sex: Female
  Weight: 69.01 kg

DRUGS (3)
  1. XIFAXAN [Suspect]
     Active Substance: RIFAXIMIN
     Dosage: GOT ANOTHER 2 WEEK PRESCRIPTION
     Route: 065
     Dates: start: 2018, end: 2018
  2. XIFAXAN [Suspect]
     Active Substance: RIFAXIMIN
     Indication: DIARRHOEA
     Dosage: USED FOR TWO AND HALF MONTHS
     Route: 065
     Dates: start: 20171226, end: 201802
  3. XIFAXAN [Suspect]
     Active Substance: RIFAXIMIN
     Dosage: GOT ANOTHER 2 WEEK PRESCRIPTION
     Route: 065
     Dates: start: 2018

REACTIONS (3)
  - Off label use [Not Recovered/Not Resolved]
  - Inability to afford medication [Recovered/Resolved]
  - Drug effective for unapproved indication [Not Recovered/Not Resolved]

NARRATIVE: CASE EVENT DATE: 20171226
